FAERS Safety Report 21204718 (Version 2)
Quarter: 2022Q3

REPORT INFORMATION
  Report Type: Spontaneous
  Country: ZA (occurrence: None)
  Receive Date: 20220812
  Receipt Date: 20220921
  Transmission Date: 20221027
  Serious: Yes (Death, Other)
  Sender: FDA-Public Use
  Company Number: 2022A281334

PATIENT
  Age: 79 Year
  Sex: Male

DRUGS (3)
  1. BUDESONIDE\FORMOTEROL [Suspect]
     Active Substance: BUDESONIDE\FORMOTEROL
     Indication: Asthma
     Route: 055
  2. VENTEZE CFC FREE [Concomitant]
     Indication: Asthma
     Route: 055
  3. PANTOCID [Concomitant]
     Indication: Ulcer
     Route: 048

REACTIONS (1)
  - Oesophageal carcinoma [Fatal]
